FAERS Safety Report 4592836-1 (Version None)
Quarter: 2005Q1

REPORT INFORMATION
  Report Type: 
  Country: None (occurrence: None)
  Receive Date: 20050228
  Receipt Date: 20030827
  Transmission Date: 20050727
  Serious: Yes (Hospitalization, Disabling, Other)
  Sender: FDA-Public Use
  Company Number: US-GLAXOSMITHKLINE-A0424017A

PATIENT
  Age: 39 Year
  Sex: Female

DRUGS (1)
  1. BC HEADACHE POWDER [Suspect]
     Indication: PAIN
     Route: 048
     Dates: start: 19850101

REACTIONS (24)
  - ABDOMINAL PAIN [None]
  - ARTERIOVENOUS FISTULA THROMBOSIS [None]
  - ASTHENIA [None]
  - BLADDER DISORDER [None]
  - BLOOD PRESSURE INCREASED [None]
  - DEEP VEIN THROMBOSIS [None]
  - DEPRESSION [None]
  - DIABETES MELLITUS [None]
  - DIALYSIS [None]
  - DYSURIA [None]
  - GASTROOESOPHAGEAL REFLUX DISEASE [None]
  - HYPERTONIC BLADDER [None]
  - HYPOGLYCAEMIA [None]
  - MITRAL VALVE INCOMPETENCE [None]
  - NAUSEA [None]
  - POLLAKIURIA [None]
  - PROTEINURIA [None]
  - RENAL DISORDER [None]
  - RENAL FAILURE [None]
  - RENAL FAILURE CHRONIC [None]
  - RENAL TRANSPLANT [None]
  - TRICUSPID VALVE INCOMPETENCE [None]
  - URINARY RETENTION [None]
  - URINARY TRACT INFECTION [None]
